FAERS Safety Report 6051172-7 (Version None)
Quarter: 2009Q1

REPORT INFORMATION
  Report Type: 
  Country: None (occurrence: None)
  Receive Date: 20090121
  Receipt Date: 20090121
  Transmission Date: 20090719
  Serious: Yes (Other)
  Sender: FDA-Public Use
  Company Number: None

PATIENT
  Age: 67 Year
  Sex: Male
  Weight: 135.1719 kg

DRUGS (1)
  1. WELCHOL [Suspect]
     Indication: BLOOD GLUCOSE ABNORMAL
     Dosage: 1 3 DAILY PO
     Route: 048
     Dates: start: 20081116, end: 20081205

REACTIONS (4)
  - DIABETIC FOOT [None]
  - FLUID RETENTION [None]
  - SKIN CHAPPED [None]
  - WEIGHT INCREASED [None]
